FAERS Safety Report 16156167 (Version 1)
Quarter: 2019Q2

REPORT INFORMATION
  Report Type: Spontaneous
  Country: FR (occurrence: FR)
  Receive Date: 20190404
  Receipt Date: 20190404
  Transmission Date: 20190711
  Serious: Yes (Other)
  Sender: FDA-Public Use
  Company Number: FR-SUN PHARMACEUTICAL INDUSTRIES LTD-2019RR-203885

PATIENT
  Age: 85 Year
  Sex: Female

DRUGS (1)
  1. AMLODIPINE RANBAXY 5 MG, GELULE [Suspect]
     Active Substance: AMLODIPINE BESYLATE
     Indication: HYPERTENSION
     Dosage: 5 MILLIGRAM, DAILY
     Route: 048
     Dates: start: 201805, end: 201806

REACTIONS (4)
  - Headache [Recovered/Resolved]
  - Vertigo [Recovered/Resolved]
  - Hypertension [Recovered/Resolved]
  - Malaise [Recovered/Resolved]

NARRATIVE: CASE EVENT DATE: 201805
